FAERS Safety Report 8066390-6 (Version None)
Quarter: 2012Q1

REPORT INFORMATION
  Report Type: 
  Country: None (occurrence: None)
  Receive Date: 20120124
  Receipt Date: 20120124
  Transmission Date: 20120608
  Serious: Yes (Other)
  Sender: FDA-Public Use
  Company Number: None

PATIENT
  Age: 55 Year
  Sex: Female
  Weight: 72.574 kg

DRUGS (1)
  1. NITROFURANTOIN [Suspect]
     Indication: URINARY TRACT INFECTION
     Route: 048
     Dates: start: 20110805, end: 20110805

REACTIONS (6)
  - CHILLS [None]
  - MYALGIA [None]
  - COUGH [None]
  - FATIGUE [None]
  - PAIN [None]
  - ACUTE RESPIRATORY DISTRESS SYNDROME [None]
